FAERS Safety Report 9625488 (Version 1)
Quarter: 2013Q4

REPORT INFORMATION
  Report Type: Spontaneous
  Country: US (occurrence: None)
  Receive Date: 20131015
  Receipt Date: 20131015
  Transmission Date: 20140711
  Serious: Yes (Hospitalization)
  Sender: FDA-Public Use
  Company Number: None

PATIENT
  Age: 68 Year
  Sex: Male
  Weight: 80.3 kg

DRUGS (1)
  1. OMEPRAZOLE [Suspect]
     Dosage: 1-2 WEEKS 1 QD ORAL
     Route: 048

REACTIONS (2)
  - Renal failure acute [None]
  - Tubulointerstitial nephritis [None]
